FAERS Safety Report 5775898-5 (Version None)
Quarter: 2008Q2

REPORT INFORMATION
  Report Type: 
  Country: None (occurrence: None)
  Receive Date: 20080617
  Receipt Date: 20080605
  Transmission Date: 20081010
  Serious: Yes (Disabling)
  Sender: FDA-Public Use
  Company Number: GB-PFIZER INC-2008048087

PATIENT
  Sex: Male
  Weight: 79.5 kg

DRUGS (1)
  1. CHANTIX [Suspect]
     Indication: SMOKING CESSATION THERAPY
     Dosage: TEXT:BID EVERY DAY
     Route: 048
     Dates: start: 20070122, end: 20080414

REACTIONS (3)
  - EYE PAIN [None]
  - LOCAL SWELLING [None]
  - TESTICULAR SWELLING [None]
